FAERS Safety Report 24818070 (Version 2)
Quarter: 2025Q1

REPORT INFORMATION
  Report Type: Report from Study
  Country: GB (occurrence: GB)
  Receive Date: 20250108
  Receipt Date: 20250213
  Transmission Date: 20250408
  Serious: Yes (Hospitalization, Other)
  Sender: TAKEDA
  Company Number: GB-TAKEDA-2025TUS001879

PATIENT
  Sex: Male

DRUGS (2)
  1. VEDOLIZUMAB [Suspect]
     Active Substance: VEDOLIZUMAB
     Indication: Colitis ulcerative
     Dosage: 108 MILLIGRAM, Q2WEEKS
  2. VEDOLIZUMAB [Suspect]
     Active Substance: VEDOLIZUMAB

REACTIONS (1)
  - Renal impairment [Unknown]
